FAERS Safety Report 4889491-X (Version None)
Quarter: 2006Q1

REPORT INFORMATION
  Report Type: 
  Country: None (occurrence: None)
  Receive Date: 20060124
  Receipt Date: 20060112
  Transmission Date: 20060701
  Serious: Yes (Life-Threatening, Hospitalization)
  Sender: FDA-Public Use
  Company Number: DK-BRISTOL-MYERS SQUIBB COMPANY-13245121

PATIENT
  Age: 47 Year
  Sex: Female

DRUGS (2)
  1. TAXOL [Suspect]
     Indication: METASTASES TO LIVER
     Route: 042
     Dates: start: 20050407, end: 20050929
  2. TRASTUZUMAB [Concomitant]

REACTIONS (2)
  - BILE DUCT STENOSIS [None]
  - HEPATIC ENZYME INCREASED [None]
